FAERS Safety Report 8243323-0 (Version None)
Quarter: 2012Q1

REPORT INFORMATION
  Report Type: 
  Country: None (occurrence: None)
  Receive Date: 20120329
  Receipt Date: 20120314
  Transmission Date: 20120608
  Serious: Yes (Hospitalization)
  Sender: FDA-Public Use
  Company Number: DE-ROCHE-1049318

PATIENT
  Age: 61 Year
  Sex: Male
  Weight: 84 kg

DRUGS (3)
  1. CISPLATIN [Suspect]
     Indication: METASTATIC GASTRIC CANCER
     Route: 042
     Dates: start: 20120224, end: 20120224
  2. FLUOROURACIL [Suspect]
     Indication: METASTATIC GASTRIC CANCER
     Route: 042
     Dates: start: 20120224, end: 20120224
  3. HERCEPTIN [Suspect]
     Indication: METASTATIC GASTRIC CANCER
     Route: 042
     Dates: start: 20120224, end: 20120224

REACTIONS (4)
  - ACUTE PRERENAL FAILURE [None]
  - MUCOSAL INFLAMMATION [None]
  - DIARRHOEA [None]
  - HYPOKALAEMIA [None]
